FAERS Safety Report 10659379 (Version 1)
Quarter: 2014Q4

REPORT INFORMATION
  Report Type: Spontaneous
  Country: US (occurrence: US)
  Receive Date: 20141217
  Receipt Date: 20141217
  Transmission Date: 20150529
  Serious: Yes (Other)
  Sender: FDA-Public Use
  Company Number: US-JNJFOC-20141207906

PATIENT
  Sex: Female

DRUGS (1)
  1. LISTERINE HEALTHYWHITE RESTORING CLEAN MINT [Suspect]
     Active Substance: SODIUM FLUORIDE
     Indication: PRODUCT USED FOR UNKNOWN INDICATION
     Route: 048

REACTIONS (3)
  - Wrong technique in drug usage process [Unknown]
  - Drug dependence [Unknown]
  - Oral discomfort [Unknown]
